FAERS Safety Report 5063971-9 (Version None)
Quarter: 2006Q3

REPORT INFORMATION
  Report Type: 
  Country: None (occurrence: None)
  Receive Date: 20060703
  Receipt Date: 20050923
  Transmission Date: 20061208
  Serious: No
  Sender: FDA-Public Use
  Company Number: 2005S1009587

PATIENT
  Age: 29 Year
  Sex: Male
  Weight: 95.2554 kg

DRUGS (2)
  1. CLOZAPINE [Suspect]
     Indication: SCHIZOPHRENIA
     Dosage: 200 MG;HS;PO
     Route: 048
  2. ARIPIPRAZOLE [Concomitant]

REACTIONS (1)
  - GRANULOCYTOPENIA [None]
